FAERS Safety Report 4730521-3 (Version None)
Quarter: 2005Q3

REPORT INFORMATION
  Report Type: 
  Country: None (occurrence: None)
  Receive Date: 20050801
  Receipt Date: 20050722
  Transmission Date: 20060218
  Serious: Yes (Other)
  Sender: FDA-Public Use
  Company Number: PHBS2005TR10778

PATIENT
  Age: 17 Year
  Sex: Male

DRUGS (4)
  1. PREDNISOLONE [Concomitant]
     Indication: GLOMERULONEPHRITIS FOCAL
     Dosage: 0.5 MG/KG/D
     Route: 065
  2. PREDNISOLONE [Concomitant]
     Dosage: 1 MG/KG/D
     Route: 065
  3. LISINOPRIL [Concomitant]
     Dosage: 5 MG/D
     Route: 065
  4. CYCLOSPORINE [Suspect]
     Indication: GLOMERULONEPHRITIS FOCAL
     Dosage: 3.5 MG/KG/D
     Route: 065

REACTIONS (6)
  - BURNING SENSATION [None]
  - CYANOSIS [None]
  - GINGIVAL HYPERPLASIA [None]
  - HYPERTRICHOSIS [None]
  - RAYNAUD'S PHENOMENON [None]
  - SKIN DISCOLOURATION [None]
